FAERS Safety Report 18620452 (Version 1)
Quarter: 2020Q4

REPORT INFORMATION
  Report Type: Report from Study
  Country: US (occurrence: US)
  Receive Date: 20201215
  Receipt Date: 20201215
  Transmission Date: 20210114
  Serious: Yes (Death, Other)
  Sender: FDA-Public Use
  Company Number: US-MYLANLABS-2020M1094284

PATIENT
  Age: 71 Year
  Sex: Male
  Weight: 281 kg

DRUGS (1)
  1. CLOZAPINE. [Suspect]
     Active Substance: CLOZAPINE
     Indication: PRODUCT USED FOR UNKNOWN INDICATION
     Dosage: 150 MILLIGRAM

REACTIONS (2)
  - Death [Fatal]
  - Living in residential institution [Unknown]

NARRATIVE: CASE EVENT DATE: 20201016
